FAERS Safety Report 12923707 (Version 1)
Quarter: 2016Q4

REPORT INFORMATION
  Report Type: Spontaneous
  Country: US (occurrence: US)
  Receive Date: 20161108
  Receipt Date: 20161108
  Transmission Date: 20170207
  Serious: Yes (Other)
  Sender: FDA-Public Use
  Company Number: None

PATIENT
  Age: 80 Year
  Sex: Male

DRUGS (25)
  1. VOTRIENT [Suspect]
     Active Substance: PAZOPANIB HYDROCHLORIDE
     Indication: RENAL CANCER
     Route: 048
     Dates: start: 20140328
  2. ALPRAZOLAM. [Concomitant]
     Active Substance: ALPRAZOLAM
  3. PROAIR HFA [Concomitant]
     Active Substance: ALBUTEROL SULFATE
  4. POTASSIUM [Concomitant]
     Active Substance: POTASSIUM
  5. LOSARTAN. [Concomitant]
     Active Substance: LOSARTAN
  6. VITAMIN D [Concomitant]
     Active Substance: CHOLECALCIFEROL
  7. CHLORTHALID [Concomitant]
  8. COQ10 [Concomitant]
     Active Substance: UBIDECARENONE
  9. FLUICASONE [Concomitant]
  10. NASONEX [Concomitant]
     Active Substance: MOMETASONE FUROATE
  11. ASPIRIN. [Concomitant]
     Active Substance: ASPIRIN
  12. FINASTERIDE. [Concomitant]
     Active Substance: FINASTERIDE
  13. LOVASTATIN. [Concomitant]
     Active Substance: LOVASTATIN
  14. FLOVENT [Concomitant]
     Active Substance: FLUTICASONE PROPIONATE
  15. VITAMIN B12 [Concomitant]
     Active Substance: CYANOCOBALAMIN
  16. PROBIOTIC [Concomitant]
     Active Substance: PROBIOTICS NOS
  17. FOLIC ACID. [Concomitant]
     Active Substance: FOLIC ACID
  18. FLOMAX [Concomitant]
     Active Substance: TAMSULOSIN HYDROCHLORIDE
  19. PLAVIX [Concomitant]
     Active Substance: CLOPIDOGREL BISULFATE
  20. CYANOCOBALAM [Concomitant]
  21. METOPROLOL. [Concomitant]
     Active Substance: METOPROLOL
  22. POT CL [Concomitant]
  23. LEVOTHYROXIN [Concomitant]
     Active Substance: LEVOTHYROXINE
  24. MUCUSRELIEF [Concomitant]
  25. ALBUTEROL. [Concomitant]
     Active Substance: ALBUTEROL

REACTIONS (1)
  - Transient ischaemic attack [None]

NARRATIVE: CASE EVENT DATE: 20161104
